FAERS Safety Report 7084491-6 (Version None)
Quarter: 2010Q4

REPORT INFORMATION
  Report Type: 
  Country: None (occurrence: None)
  Receive Date: 20101104
  Receipt Date: 20101028
  Transmission Date: 20110411
  Serious: Yes (Hospitalization)
  Sender: FDA-Public Use
  Company Number: IT-PFIZER INC-2010137319

PATIENT
  Age: 40 Year
  Sex: Female

DRUGS (4)
  1. ZITROMAX [Suspect]
     Indication: BRONCHITIS
     Dosage: 500 MG, 1X/DAY
     Dates: start: 20100920, end: 20100922
  2. XYZAL [Concomitant]
  3. SYMBICORT [Concomitant]
  4. BETAMETHASONE SODIUM PHOSPHATE [Concomitant]
     Dosage: 3 MG, UNK
     Route: 048

REACTIONS (2)
  - FEELING HOT [None]
  - SKIN REACTION [None]
